FAERS Safety Report 5613403-4 (Version None)
Quarter: 2008Q1

REPORT INFORMATION
  Report Type: 
  Country: None (occurrence: None)
  Receive Date: 20080129
  Receipt Date: 20080114
  Transmission Date: 20080703
  Serious: Yes (Hospitalization)
  Sender: FDA-Public Use
  Company Number: S08-FRA-00269-01

PATIENT
  Age: 44 Year
  Sex: Female

DRUGS (5)
  1. ESCITALOPRAM [Suspect]
     Indication: DEPRESSION
     Dosage: 10 MG QD PO
     Route: 048
     Dates: end: 20070923
  2. ESCITALOPRAM [Suspect]
     Indication: DEPRESSION
     Dates: start: 20071015
  3. BETAFERON [Suspect]
     Indication: MULTIPLE SCLEROSIS
     Dosage: 250 QOD SC
     Route: 058
     Dates: end: 20070923
  4. BETAFERON [Suspect]
     Indication: MULTIPLE SCLEROSIS
     Dates: start: 20070926
  5. RELPAX [Suspect]
     Indication: MIGRAINE
     Dosage: 1 QD PO
     Route: 048
     Dates: start: 20070919, end: 20070923

REACTIONS (7)
  - ABNORMAL FAECES [None]
  - C-REACTIVE PROTEIN INCREASED [None]
  - INTESTINAL ISCHAEMIA [None]
  - LEUKOCYTOSIS [None]
  - MURPHY'S SIGN POSITIVE [None]
  - PERITONEAL EFFUSION [None]
  - VOMITING [None]
